FAERS Safety Report 4316069-9 (Version None)
Quarter: 2004Q1

REPORT INFORMATION
  Report Type: 
  Country: None (occurrence: None)
  Receive Date: 20040310
  Receipt Date: 20040301
  Transmission Date: 20041129
  Serious: Yes (Hospitalization)
  Sender: FDA-Public Use
  Company Number: FRWYE615102MAR04

PATIENT
  Age: 48 Year
  Sex: Male

DRUGS (10)
  1. RAPAMUNE [Suspect]
     Indication: PROPHYLAXIS AGAINST TRANSPLANT REJECTION
     Dosage: 4 MG DAILY AT THE TIME OF THE EVENT ONSET
     Route: 048
     Dates: start: 20030701, end: 20040201
  2. CELLCEPT [Suspect]
     Indication: PROPHYLAXIS AGAINST TRANSPLANT REJECTION
     Dosage: 750 MG 2XPER 1 DAY
     Route: 048
     Dates: start: 20030702
  3. PREDNISONE [Suspect]
     Indication: PROPHYLAXIS AGAINST TRANSPLANT REJECTION
     Dosage: SEE IMAGE
     Route: 048
     Dates: start: 20030729, end: 20040201
  4. PREDNISONE [Suspect]
     Indication: PROPHYLAXIS AGAINST TRANSPLANT REJECTION
     Dosage: SEE IMAGE
     Route: 048
     Dates: start: 20040201
  5. LOPRESSOR [Concomitant]
  6. RAMIPRIL [Concomitant]
  7. ONE-ALPHA (ALFACALCIDOL) [Concomitant]
  8. TAHOR (ATORVASTATIN) [Concomitant]
  9. SPIRONOLACTONE [Concomitant]
  10. LEVOTHYROXINE SODIUM [Concomitant]

REACTIONS (2)
  - GASTRITIS [None]
  - OESOPHAGITIS ULCERATIVE [None]
